FAERS Safety Report 6165535-2 (Version None)
Quarter: 2009Q2

REPORT INFORMATION
  Report Type: 
  Country: None (occurrence: None)
  Receive Date: 20090423
  Receipt Date: 20080731
  Transmission Date: 20091009
  Serious: No
  Sender: FDA-Public Use
  Company Number: US-BRISTOL-MYERS SQUIBB COMPANY-14284723

PATIENT
  Sex: Female

DRUGS (3)
  1. CARBOPLATIN [Suspect]
     Dates: end: 20080101
  2. DOCETAXEL [Suspect]
     Dates: end: 20080101
  3. TRASTUZUMAB [Suspect]
     Dates: end: 20080101

REACTIONS (2)
  - BURNING SENSATION [None]
  - ERYTHEMA OF EYELID [None]
